FAERS Safety Report 6683046-2 (Version None)
Quarter: 2010Q2

REPORT INFORMATION
  Report Type: 
  Country: None (occurrence: None)
  Receive Date: 20100415
  Receipt Date: 20100406
  Transmission Date: 20101027
  Serious: Yes (Other)
  Sender: FDA-Public Use
  Company Number: PHHY2009JP35789

PATIENT
  Age: 52 Year
  Sex: Female

DRUGS (2)
  1. SANDOSTATIN [Suspect]
     Indication: PANCREATIC LEAK
     Dosage: 300 UG, TID
     Route: 058
     Dates: start: 20090823, end: 20090824
  2. SANDOSTATIN [Suspect]
     Dosage: 300 UG DAILY
     Route: 058
     Dates: start: 20090825

REACTIONS (2)
  - BLOOD GLUCOSE DECREASED [None]
  - POST PROCEDURAL INFECTION [None]
